FAERS Safety Report 7338231-3 (Version None)
Quarter: 2011Q1

REPORT INFORMATION
  Report Type: 
  Country: None (occurrence: None)
  Receive Date: 20110308
  Receipt Date: 20110223
  Transmission Date: 20110831
  Serious: Yes (Other)
  Sender: FDA-Public Use
  Company Number: PHHY2011GB11973

PATIENT
  Age: 44 Year
  Sex: Female

DRUGS (3)
  1. METHOTREXATE [Suspect]
     Indication: RHEUMATOID ARTHRITIS
  2. PREDNISOLONE [Suspect]
     Indication: RHEUMATOID ARTHRITIS
     Dosage: 15 MG, DAILY
     Route: 048
  3. ADALIMUMAB [Suspect]
     Indication: RHEUMATOID ARTHRITIS

REACTIONS (10)
  - MUSCULAR WEAKNESS [None]
  - AREFLEXIA [None]
  - NERVE DEGENERATION [None]
  - STAPHYLOCOCCAL INFECTION [None]
  - CHRONIC INFLAMMATORY DEMYELINATING POLYRADICULONEUROPATHY [None]
  - PARALYSIS [None]
  - PARAESTHESIA [None]
  - SENSORY DISTURBANCE [None]
  - DEMYELINATION [None]
  - NERVE ROOT LESION [None]
